FAERS Safety Report 22202623 (Version 1)
Quarter: 2023Q2

REPORT INFORMATION
  Report Type: Spontaneous
  Country: AU (occurrence: AU)
  Receive Date: 20230412
  Receipt Date: 20230412
  Transmission Date: 20230721
  Serious: Yes (Other)
  Sender: FDA-Public Use
  Company Number: AU-AMGEN-AUSSP2023057543

PATIENT
  Age: 57 Year
  Sex: Female

DRUGS (1)
  1. REPATHA [Suspect]
     Active Substance: EVOLOCUMAB
     Indication: Type IIa hyperlipidaemia
     Dosage: 150 UNK
     Route: 065

REACTIONS (8)
  - Neuropathy peripheral [Unknown]
  - Sinus congestion [Unknown]
  - Chest pain [Unknown]
  - Palpitations [Unknown]
  - Vertigo [Unknown]
  - Sinusitis [Unknown]
  - Hypertension [Unknown]
  - Off label use [Unknown]
